FAERS Safety Report 4967699-2 (Version None)
Quarter: 2006Q2

REPORT INFORMATION
  Report Type: 
  Country: None (occurrence: None)
  Receive Date: 20060410
  Receipt Date: 20051004
  Transmission Date: 20061013
  Serious: Yes (Hospitalization, Disabling)
  Sender: FDA-Public Use
  Company Number: US-MERCK-0510USA03561

PATIENT
  Age: 51 Year
  Sex: Male
  Weight: 114 kg

DRUGS (2)
  1. VIOXX [Suspect]
     Indication: SHOULDER PAIN
     Route: 048
     Dates: start: 20021101, end: 20031101
  2. VIOXX [Suspect]
     Indication: ARTHRALGIA
     Route: 048
     Dates: start: 20021101, end: 20031101

REACTIONS (7)
  - ARTHRALGIA [None]
  - ARTHROPATHY [None]
  - MENISCUS LESION [None]
  - NEUROPATHY [None]
  - PRESCRIBED OVERDOSE [None]
  - ROTATOR CUFF SYNDROME [None]
  - THROMBOSIS [None]
